FAERS Safety Report 7477209-6 (Version None)
Quarter: 2011Q2

REPORT INFORMATION
  Report Type: 
  Country: None (occurrence: None)
  Receive Date: 20110512
  Receipt Date: 20110428
  Transmission Date: 20111010
  Serious: Yes (Death)
  Sender: FDA-Public Use
  Company Number: JP-BRISTOL-MYERS SQUIBB COMPANY-15542244

PATIENT
  Age: 61 Year
  Sex: Male
  Weight: 44 kg

DRUGS (10)
  1. METHOTREXATE [Suspect]
     Dosage: INITIAL DOSE:8MG/WK STOP ON 09DEC10.,DOSE INCREASED TO 16MG/WK ON 06JAN11 DISCONTINUED
     Route: 048
     Dates: start: 20101223, end: 20110106
  2. FERROUS CITRATE [Concomitant]
     Dosage: FEROTYM
  3. PREDNISOLONE [Suspect]
     Dosage: INITIAL DOSE:13MG/D STOP ON 09DEC10,DOSE INCREASED TO 15MG/D ON 06JAN11 ONGOING
     Route: 048
  4. ADALIMUMAB [Concomitant]
     Dates: start: 20091119, end: 20100610
  5. DICLOFENAC SODIUM [Concomitant]
     Indication: RHEUMATOID ARTHRITIS
     Dosage: SORELMON SR
  6. FAMOTIDINE [Concomitant]
  7. ORENCIA [Suspect]
     Indication: RHEUMATOID ARTHRITIS
     Dosage: THERAPY DATES:06JAN11
     Route: 041
     Dates: start: 20101215
  8. ISONIAZID [Concomitant]
  9. FOLIC ACID [Concomitant]
  10. FOSAMAC [Concomitant]

REACTIONS (1)
  - PNEUMOCYSTIS JIROVECI PNEUMONIA [None]
